FAERS Safety Report 10227761 (Version 1)
Quarter: 2014Q2

REPORT INFORMATION
  Report Type: Spontaneous
  Country: US (occurrence: None)
  Receive Date: 20140609
  Receipt Date: 20140609
  Transmission Date: 20141212
  Serious: No
  Sender: FDA-Public Use
  Company Number: None

PATIENT
  Age: 67 Year
  Sex: Female
  Weight: 111.13 kg

DRUGS (1)
  1. ASTELASTINE [Suspect]
     Indication: MULTIPLE ALLERGIES
     Dosage: 1-2 SPRAYS, TWICE DAILY, IN EACH NOSTRIL
     Route: 045

REACTIONS (3)
  - Heart rate irregular [None]
  - Arrhythmia [None]
  - Heart rate increased [None]
